FAERS Safety Report 6856615-4 (Version None)
Quarter: 2010Q3

REPORT INFORMATION
  Report Type: 
  Country: None (occurrence: None)
  Receive Date: 20100716
  Receipt Date: 20100716
  Transmission Date: 20110219
  Serious: Yes (Other)
  Sender: FDA-Public Use
  Company Number: None

PATIENT
  Age: 59 Year
  Sex: Male
  Weight: 91.4 kg

DRUGS (1)
  1. TOPIRAMATE (TOPAMAX) 50 MG. MYLAN [Suspect]
     Indication: MIGRAINE
     Dosage: 50 MG. 1 DAILY AT NIGHT ORALLY (047)
     Route: 048
     Dates: start: 20100610, end: 20100629

REACTIONS (5)
  - AGITATION [None]
  - FOOD AVERSION [None]
  - INSOMNIA [None]
  - PERSONALITY CHANGE [None]
  - WEIGHT DECREASED [None]
